FAERS Safety Report 9001017 (Version 1)
Quarter: 2013Q1

REPORT INFORMATION
  Report Type: Spontaneous
  Country: US (occurrence: None)
  Receive Date: 20130103
  Receipt Date: 20130103
  Transmission Date: 20140127
  Serious: No
  Sender: FDA-Public Use
  Company Number: None

PATIENT
  Age: 56 Year
  Sex: Male
  Weight: 119.3 kg

DRUGS (1)
  1. MUCINEX [Suspect]
     Indication: NASOPHARYNGITIS
     Dosage: 12 HOURS   2X PER DAY

REACTIONS (2)
  - Heart rate increased [None]
  - Blood pressure increased [None]
